FAERS Safety Report 21223366 (Version 2)
Quarter: 2022Q4

REPORT INFORMATION
  Report Type: Spontaneous
  Country: IN (occurrence: IN)
  Receive Date: 20220817
  Receipt Date: 20221013
  Transmission Date: 20230113
  Serious: Yes (Death, Other)
  Sender: FDA-Public Use
  Company Number: IN-GLENMARK PHARMACEUTICALS-2022GMK074329

PATIENT

DRUGS (1)
  1. ABIRATERONE ACETATE [Suspect]
     Active Substance: ABIRATERONE ACETATE
     Indication: Prostate cancer
     Dosage: 1 DOSAGE FORM, QD
     Route: 048
     Dates: end: 20220610

REACTIONS (3)
  - Silent myocardial infarction [Fatal]
  - Pyrexia [Unknown]
  - Dyspnoea [Unknown]
